FAERS Safety Report 10568851 (Version 2)
Quarter: 2015Q3

REPORT INFORMATION
  Report Type: Spontaneous
  Country: AU (occurrence: AU)
  Receive Date: 20141106
  Receipt Date: 20150806
  Transmission Date: 20151125
  Serious: Yes (Other)
  Sender: FDA-Public Use
  Company Number: AU-ABBVIE-14K-008-1303324-00

PATIENT
  Sex: Female

DRUGS (1)
  1. HUMIRA [Suspect]
     Active Substance: ADALIMUMAB
     Indication: PSORIATIC ARTHROPATHY
     Route: 065
     Dates: start: 20130914

REACTIONS (4)
  - Upper limb fracture [Recovering/Resolving]
  - Accident [Recovering/Resolving]
  - Foot fracture [Recovering/Resolving]
  - Psoriatic arthropathy [Recovering/Resolving]
